FAERS Safety Report 16404936 (Version 1)
Quarter: 2019Q2

REPORT INFORMATION
  Report Type: Report from Study
  Country: MX (occurrence: MX)
  Receive Date: 20190607
  Receipt Date: 20190607
  Transmission Date: 20190711
  Serious: Yes (Hospitalization)
  Sender: FDA-Public Use
  Company Number: PHHY2019MX067847

PATIENT
  Sex: Female
  Weight: 68 kg

DRUGS (2)
  1. EXFORGE HCT [Suspect]
     Active Substance: AMLODIPINE BESYLATE\HYDROCHLOROTHIAZIDE\VALSARTAN
     Indication: HYPERTENSIVE CRISIS
     Dosage: 1 DF, (AMLODIPINE 5 MG, HYDROCHLOROTHIAZIDE 12.5 MG, VALSARTAN 160 MG) Q12H
     Route: 048
     Dates: start: 20190210
  2. CO-DIOVAN [Suspect]
     Active Substance: HYDROCHLOROTHIAZIDE\VALSARTAN
     Indication: BLOOD PRESSURE INCREASED
     Dosage: 1 DF (HYDROCHLOROTHIAZIDE 12.5 MG, VALSARTAN 160 MG), Q12H
     Route: 048

REACTIONS (9)
  - Cerebral infarction [Unknown]
  - Memory impairment [Recovering/Resolving]
  - Dizziness [Recovering/Resolving]
  - Feeling abnormal [Unknown]
  - Headache [Recovering/Resolving]
  - Incorrect dose administered [Unknown]
  - Dyspnoea [Recovering/Resolving]
  - Inappropriate schedule of product administration [Unknown]
  - Drug ineffective [Recovering/Resolving]
